FAERS Safety Report 8530093-1 (Version None)
Quarter: 2012Q3

REPORT INFORMATION
  Report Type: 
  Country: None (occurrence: None)
  Receive Date: 20120723
  Receipt Date: 20120719
  Transmission Date: 20120928
  Serious: Yes (Other)
  Sender: FDA-Public Use
  Company Number: PHEH2011US00484

PATIENT
  Sex: Female

DRUGS (6)
  1. COMPAZINE [Concomitant]
     Dosage: 10 MG, PRN
  2. XELODA [Concomitant]
     Dosage: 500 MG
  3. METHOTREXATE [Concomitant]
     Dosage: 10 MG, QW
  4. PEPCID [Concomitant]
     Dosage: 20 MG, BID
  5. ZOMETA [Suspect]
     Indication: BREAST CANCER METASTATIC
     Route: 042
     Dates: start: 20030701, end: 20061201
  6. ATIVAN [Concomitant]
     Dosage: 0.5 MG, PRN

REACTIONS (60)
  - LUMBAR SPINAL STENOSIS [None]
  - HILAR LYMPHADENOPATHY [None]
  - PERIPHERAL NERVE LESION [None]
  - GOITRE [None]
  - RADICULOPATHY [None]
  - INTERVERTEBRAL DISC SPACE NARROWING [None]
  - EUSTACHIAN TUBE PATULOUS [None]
  - PAIN [None]
  - INFECTION [None]
  - EXPOSED BONE IN JAW [None]
  - ROTATOR CUFF SYNDROME [None]
  - LUNG NEOPLASM [None]
  - CEREBROVASCULAR ACCIDENT [None]
  - INTERVERTEBRAL DISC PROTRUSION [None]
  - TINNITUS [None]
  - TRANSAMINASES INCREASED [None]
  - TOOTHACHE [None]
  - THYROID NEOPLASM [None]
  - PLEURAL FIBROSIS [None]
  - PLEURAL EFFUSION [None]
  - UTERINE LEIOMYOMA [None]
  - NEUROMA [None]
  - METASTASES TO LYMPH NODES [None]
  - PNEUMOTHORAX [None]
  - DEFORMITY [None]
  - LOOSE TOOTH [None]
  - RENAL CYST [None]
  - RIB FRACTURE [None]
  - ATELECTASIS [None]
  - OSTEOPENIA [None]
  - GALLBLADDER POLYP [None]
  - PERICARDIAL EFFUSION MALIGNANT [None]
  - CARDIOMEGALY [None]
  - PULMONARY EMBOLISM [None]
  - HEPATIC LESION [None]
  - PERICARDITIS [None]
  - CHEST PAIN [None]
  - VOCAL CORD PARALYSIS [None]
  - ARACHNOID CYST [None]
  - DYSPHONIA [None]
  - OSTEONECROSIS OF JAW [None]
  - PHYSICAL DISABILITY [None]
  - INJURY [None]
  - PULPITIS DENTAL [None]
  - ARTHROPATHY [None]
  - PERICARDIAL HAEMORRHAGE [None]
  - DYSPNOEA [None]
  - METASTASES TO CENTRAL NERVOUS SYSTEM [None]
  - METASTASES TO BONE [None]
  - SPONDYLOLISTHESIS [None]
  - RECTAL POLYP [None]
  - ANAEMIA [None]
  - CEREBRAL CYST [None]
  - COLLAGEN-VASCULAR DISEASE [None]
  - ANXIETY [None]
  - RHEUMATOID ARTHRITIS [None]
  - ENCEPHALOMALACIA [None]
  - CARDIAC TAMPONADE [None]
  - HYPOTENSION [None]
  - SINUSITIS [None]
